FAERS Safety Report 16300276 (Version 2)
Quarter: 2021Q1

REPORT INFORMATION
  Report Type: Spontaneous
  Country: US (occurrence: US)
  Receive Date: 20190510
  Receipt Date: 20210209
  Transmission Date: 20210419
  Serious: Yes (Hospitalization, Other)
  Sender: FDA-Public Use
  Company Number: US-ASTRAZENECA-2019SE63447

PATIENT
  Age: 530 Month
  Sex: Male
  Weight: 117 kg

DRUGS (69)
  1. MELOXICAM. [Concomitant]
     Active Substance: MELOXICAM
  2. CRESTOR [Concomitant]
     Active Substance: ROSUVASTATIN CALCIUM
  3. DICLOFENAC [Concomitant]
     Active Substance: DICLOFENAC
  4. LISINOPRIL. [Concomitant]
     Active Substance: LISINOPRIL
  5. PRILOSEC [Suspect]
     Active Substance: OMEPRAZOLE MAGNESIUM
     Indication: GASTROOESOPHAGEAL REFLUX DISEASE
     Dosage: GENERIC
     Route: 065
     Dates: start: 20101216, end: 20180301
  6. HYDROMORPHONE [Concomitant]
     Active Substance: HYDROMORPHONE
  7. DEXILANT [Suspect]
     Active Substance: DEXLANSOPRAZOLE
     Indication: GASTROOESOPHAGEAL REFLUX DISEASE
     Route: 065
     Dates: start: 200303, end: 201612
  8. GABAPENTIN. [Concomitant]
     Active Substance: GABAPENTIN
     Indication: PAIN
     Dates: start: 20170509
  9. CEFDINIR. [Concomitant]
     Active Substance: CEFDINIR
  10. HYDROXYZINE HCL [Concomitant]
     Active Substance: HYDROXYZINE HYDROCHLORIDE
  11. NEXIUM 24HR [Suspect]
     Active Substance: ESOMEPRAZOLE MAGNESIUM
     Route: 048
     Dates: start: 200303, end: 201612
  12. PROTONIX [Suspect]
     Active Substance: PANTOPRAZOLE SODIUM
     Indication: GASTROOESOPHAGEAL REFLUX DISEASE
     Route: 065
     Dates: start: 200303, end: 201612
  13. PROTONIX [Suspect]
     Active Substance: PANTOPRAZOLE SODIUM
     Indication: GASTROOESOPHAGEAL REFLUX DISEASE
     Route: 048
     Dates: start: 20030309
  14. HUMULIN NOS [Concomitant]
     Active Substance: INSULIN HUMAN
     Indication: DIABETES MELLITUS
     Dates: start: 20170509
  15. CIPROFLOXACIN. [Concomitant]
     Active Substance: CIPROFLOXACIN
  16. AVANDAMET [Concomitant]
     Active Substance: METFORMIN HYDROCHLORIDE\ROSIGLITAZONE MALEATE
  17. NOVOLOG [Concomitant]
     Active Substance: INSULIN ASPART
  18. DIOVAN HCT [Concomitant]
     Active Substance: HYDROCHLOROTHIAZIDE\VALSARTAN
  19. CETIRIZINE [Concomitant]
     Active Substance: CETIRIZINE HYDROCHLORIDE
  20. IBUPROFEN. [Concomitant]
     Active Substance: IBUPROFEN
  21. HYOSCYAMINE. [Concomitant]
     Active Substance: HYOSCYAMINE
  22. SPIRONOLACTONE. [Concomitant]
     Active Substance: SPIRONOLACTONE
  23. SPIRIVA [Concomitant]
     Active Substance: TIOTROPIUM BROMIDE MONOHYDRATE
  24. PROTONIX [Suspect]
     Active Substance: PANTOPRAZOLE SODIUM
     Route: 065
     Dates: start: 200303, end: 201612
  25. SIMETHICONE (DIMETHICONE) [Concomitant]
     Active Substance: DIMETHICONE
     Indication: ABDOMINAL DISTENSION
     Dates: start: 20170509
  26. TORSEMIDE. [Concomitant]
     Active Substance: TORSEMIDE
     Indication: DIURETIC THERAPY
     Dates: start: 20170509
  27. METFORMIN [Concomitant]
     Active Substance: METFORMIN HYDROCHLORIDE
  28. GLIPIZIDE. [Concomitant]
     Active Substance: GLIPIZIDE
  29. AMOXICILLIN. [Concomitant]
     Active Substance: AMOXICILLIN
  30. POTASSIUM CHLORIDE. [Concomitant]
     Active Substance: POTASSIUM CHLORIDE
  31. BYETTA [Concomitant]
     Active Substance: EXENATIDE
  32. BENZONATATE. [Concomitant]
     Active Substance: BENZONATATE
  33. PRAVASTATIN. [Concomitant]
     Active Substance: PRAVASTATIN
  34. VICTOZA [Concomitant]
     Active Substance: LIRAGLUTIDE
  35. PREDNISOLONE ACETATE. [Concomitant]
     Active Substance: PREDNISOLONE ACETATE
  36. KETOROLAC [Concomitant]
     Active Substance: KETOROLAC TROMETHAMINE
  37. PROTONIX [Suspect]
     Active Substance: PANTOPRAZOLE SODIUM
     Indication: GASTROOESOPHAGEAL REFLUX DISEASE
     Route: 065
     Dates: start: 20040309, end: 20170525
  38. HYDROCHLOROT [Concomitant]
     Active Substance: HYDROCHLOROTHIAZIDE
  39. FUROSEMIDE. [Concomitant]
     Active Substance: FUROSEMIDE
  40. GEMFIBROZIL. [Concomitant]
     Active Substance: GEMFIBROZIL
  41. SIMVASTATIN. [Concomitant]
     Active Substance: SIMVASTATIN
  42. JANUVIA [Concomitant]
     Active Substance: SITAGLIPTIN PHOSPHATE
  43. VITAMIN D2 [Concomitant]
     Active Substance: ERGOCALCIFEROL
  44. METOLAZONE. [Concomitant]
     Active Substance: METOLAZONE
  45. EPLERENONE. [Concomitant]
     Active Substance: EPLERENONE
  46. WARFARIN [Concomitant]
     Active Substance: WARFARIN
  47. LEVITRA [Concomitant]
     Active Substance: VARDENAFIL HYDROCHLORIDE
  48. PRILOSEC [Suspect]
     Active Substance: OMEPRAZOLE MAGNESIUM
     Indication: GASTROOESOPHAGEAL REFLUX DISEASE
     Route: 048
     Dates: start: 20131203
  49. PROTONIX [Suspect]
     Active Substance: PANTOPRAZOLE SODIUM
     Indication: GASTROOESOPHAGEAL REFLUX DISEASE
     Dosage: GENERIC
     Route: 065
     Dates: start: 20110122, end: 20160516
  50. ISOSORBIDE MONONITRATE. [Concomitant]
     Active Substance: ISOSORBIDE MONONITRATE
     Indication: ANGINA PECTORIS
     Dates: start: 20170509
  51. LIPITOR [Concomitant]
     Active Substance: ATORVASTATIN CALCIUM
  52. OXYCOD/ACETAMIN [Concomitant]
  53. LANTUS [Concomitant]
     Active Substance: INSULIN GLARGINE
  54. BENICAR HCT [Concomitant]
     Active Substance: HYDROCHLOROTHIAZIDE\OLMESARTAN MEDOXOMIL
  55. VALSARTAN. [Concomitant]
     Active Substance: VALSARTAN
  56. DEXILANT [Suspect]
     Active Substance: DEXLANSOPRAZOLE
     Indication: GASTROOESOPHAGEAL REFLUX DISEASE
     Route: 065
     Dates: start: 20160914, end: 20161213
  57. OXYCODONE [Concomitant]
     Active Substance: OXYCODONE
     Indication: PAIN
     Dates: start: 20170509
  58. ONDANSETRON [Concomitant]
     Active Substance: ONDANSETRON
     Indication: NAUSEA
     Dates: start: 20170509
  59. TRAZODONE [Concomitant]
     Active Substance: TRAZODONE HYDROCHLORIDE
     Indication: DEPRESSION
     Dates: start: 20170509
  60. ASPIRIN. [Concomitant]
     Active Substance: ASPIRIN
     Indication: CARDIAC DISORDER
     Dates: start: 20170509
  61. PREVPAC [Concomitant]
     Active Substance: AMOXICILLIN\CLARITHROMYCIN\LANSOPRAZOLE
  62. AZITHROMYCIN ANHYDROUS. [Concomitant]
     Active Substance: AZITHROMYCIN ANHYDROUS
  63. LISINOPRIL/HCTZ [Concomitant]
     Active Substance: HYDROCHLOROTHIAZIDE\LISINOPRIL
  64. PENICILLN VK [Concomitant]
  65. AMLODIPINE BESYLATE. [Concomitant]
     Active Substance: AMLODIPINE BESYLATE
  66. FENOFIBRATE. [Concomitant]
     Active Substance: FENOFIBRATE
  67. NITROSTAT [Concomitant]
     Active Substance: NITROGLYCERIN
     Indication: ANGINA PECTORIS
     Dates: start: 20170509
  68. TRIMOX [Concomitant]
     Active Substance: AMOXICILLIN
  69. VIGAMOX [Concomitant]
     Active Substance: MOXIFLOXACIN HYDROCHLORIDE

REACTIONS (6)
  - Acute kidney injury [Not Recovered/Not Resolved]
  - Renal failure [Unknown]
  - Chronic kidney disease [Not Recovered/Not Resolved]
  - Hyperkalaemia [Unknown]
  - End stage renal disease [Unknown]
  - Renal tubular necrosis [Unknown]

NARRATIVE: CASE EVENT DATE: 201307
